FAERS Safety Report 9081769 (Version 1)
Quarter: 2013Q1

REPORT INFORMATION
  Report Type: Report from Study
  Country: US (occurrence: US)
  Receive Date: 20130130
  Receipt Date: 20130130
  Transmission Date: 20140127
  Serious: No
  Sender: FDA-Public Use
  Company Number: US-ABBOTT-12P-163-0953363-00

PATIENT
  Sex: Female
  Weight: 68.1 kg

DRUGS (4)
  1. HUMIRA 40 MG/0.8 ML PEN [Suspect]
     Indication: ARTHRITIS
     Dates: start: 201107, end: 201111
  2. HUMIRA 40 MG/0.8 ML PEN [Suspect]
     Indication: ARTHRITIS
     Dates: start: 201111
  3. AMITIZA [Concomitant]
     Indication: IRRITABLE BOWEL SYNDROME
  4. ORTHO TRI CYCLEN [Concomitant]
     Indication: MENSTRUAL DISORDER

REACTIONS (1)
  - Drug ineffective [Recovered/Resolved]
